FAERS Safety Report 6623673-1 (Version None)
Quarter: 2010Q1

REPORT INFORMATION
  Report Type: 
  Country: None (occurrence: None)
  Receive Date: 20100310
  Receipt Date: 20091111
  Transmission Date: 20100710
  Serious: No
  Sender: FDA-Public Use
  Company Number: US-BIOGENIDEC-2009BI036787

PATIENT
  Age: 37 Year
  Sex: Female

DRUGS (1)
  1. AVONEX [Suspect]
     Indication: MULTIPLE SCLEROSIS
     Route: 030
     Dates: start: 20090730

REACTIONS (7)
  - FALL [None]
  - INJECTION SITE PAIN [None]
  - RADIUS FRACTURE [None]
  - SCAPULA FRACTURE [None]
  - ULNA FRACTURE [None]
  - UPPER LIMB FRACTURE [None]
  - WRIST FRACTURE [None]
